FAERS Safety Report 6317187-6 (Version None)
Quarter: 2009Q3

REPORT INFORMATION
  Report Type: 
  Country: None (occurrence: None)
  Receive Date: 20090820
  Receipt Date: 20090813
  Transmission Date: 20100115
  Serious: Yes (Hospitalization)
  Sender: FDA-Public Use
  Company Number: US-AMGEN-QUU360048

PATIENT
  Sex: Female

DRUGS (2)
  1. ENBREL [Suspect]
     Indication: PSORIATIC ARTHROPATHY
     Route: 058
     Dates: start: 20050823
  2. ENBREL [Suspect]
     Indication: PSORIASIS

REACTIONS (8)
  - ABSCESS [None]
  - ARTHRALGIA [None]
  - INCISIONAL HERNIA [None]
  - INFECTION [None]
  - INTESTINAL PERFORATION [None]
  - PERITONITIS [None]
  - PSORIASIS [None]
  - RENAL FAILURE [None]
